FAERS Safety Report 21069111 (Version 2)
Quarter: 2024Q3

REPORT INFORMATION
  Report Type: Spontaneous
  Country: US (occurrence: US)
  Receive Date: 20220712
  Receipt Date: 20240722
  Transmission Date: 20241017
  Serious: No
  Sender: ASTELLAS
  Company Number: US-ASTELLAS-2021US045742

PATIENT
  Sex: Female

DRUGS (2)
  1. MYRBETRIQ [Suspect]
     Active Substance: MIRABEGRON
     Indication: Product used for unknown indication
     Route: 065
     Dates: start: 202111, end: 202111
  2. MYRBETRIQ [Suspect]
     Active Substance: MIRABEGRON
     Dosage: HALF TABLET, ONCE DAILY
     Route: 065
     Dates: start: 202111

REACTIONS (3)
  - Abdominal discomfort [Unknown]
  - Pelvic discomfort [Unknown]
  - Wrong technique in product usage process [Unknown]

NARRATIVE: CASE EVENT DATE: 20211101
